FAERS Safety Report 5897560-0 (Version None)
Quarter: 2008Q3

REPORT INFORMATION
  Report Type: 
  Country: None (occurrence: None)
  Receive Date: 20080925
  Receipt Date: 20080915
  Transmission Date: 20090109
  Serious: Yes (Other)
  Sender: FDA-Public Use
  Company Number: US-BAYER-200813775BCC

PATIENT
  Age: 68 Year
  Sex: Male
  Weight: 97 kg

DRUGS (11)
  1. ALKA-SELTZER ORIGINAL TABLETS [Suspect]
     Indication: LAXATIVE SUPPORTIVE CARE
     Dosage: TOTAL DAILY DOSE: 2 DF  UNIT DOSE: 2 DF
     Route: 048
     Dates: start: 20070508, end: 20070512
  2. ASPIRIN TAB [Suspect]
     Indication: DRUG USE FOR UNKNOWN INDICATION
  3. PLAVIX [Suspect]
     Indication: DRUG USE FOR UNKNOWN INDICATION
  4. OXYCONTIN [Concomitant]
  5. OXYCODONE HCL [Concomitant]
  6. SOMA [Concomitant]
  7. OMEPRAZOLE [Concomitant]
  8. PHENERGAN HCL [Concomitant]
  9. BUSPIRONE HCL [Concomitant]
  10. LIPITOR [Concomitant]
  11. NEXIUM [Concomitant]

REACTIONS (2)
  - OPERATIVE HAEMORRHAGE [None]
  - PROCEDURAL HYPOTENSION [None]
